FAERS Safety Report 7645837-0 (Version None)
Quarter: 2011Q3

REPORT INFORMATION
  Report Type: 
  Country: None (occurrence: None)
  Receive Date: 20110729
  Receipt Date: 20110718
  Transmission Date: 20111222
  Serious: Yes (Hospitalization, Other)
  Sender: FDA-Public Use
  Company Number: PHHY2011BR65461

PATIENT
  Age: 14 Year
  Sex: Female
  Weight: 3.2 kg

DRUGS (3)
  1. TEGRETOL [Suspect]
     Indication: EPILEPSY
     Dosage: 2 DF, DAILY
     Route: 064
  2. TEGRETOL [Suspect]
     Dosage: 8 DF, DAILY
     Route: 064
  3. MATERNA [Concomitant]
     Dosage: 1 DF, DAILY

REACTIONS (2)
  - PREMATURE BABY [None]
  - MATERNAL EXPOSURE DURING PREGNANCY [None]
